FAERS Safety Report 8804294 (Version 1)
Quarter: 2012Q4

REPORT INFORMATION
  Report Type: 
  Country: ZA (occurrence: ZA)
  Receive Date: 20120924
  Receipt Date: 20120924
  Transmission Date: 20130627
  Serious: Yes (Other)
  Sender: FDA-Public Use
  Company Number: ZA-JNJFOC-20120907778

PATIENT
  Age: 13 Year
  Sex: Male

DRUGS (2)
  1. REVLLEX [Suspect]
     Indication: COLITIS ULCERATIVE
     Route: 042
  2. SOLU MEDROL [Concomitant]
     Indication: PREMEDICATION
     Route: 042

REACTIONS (3)
  - Blood pressure decreased [Unknown]
  - Infusion related reaction [Unknown]
  - Rash [Unknown]
